FAERS Safety Report 7557214-1 (Version None)
Quarter: 2011Q2

REPORT INFORMATION
  Report Type: 
  Country: None (occurrence: None)
  Receive Date: 20110620
  Receipt Date: 20101109
  Transmission Date: 20111010
  Serious: No
  Sender: FDA-Public Use
  Company Number: US-MYLANLABS-2010S1020621

PATIENT
  Age: 53 Year
  Sex: Male

DRUGS (3)
  1. DUONEB [Concomitant]
  2. PERFOROMIST [Suspect]
     Indication: CHRONIC OBSTRUCTIVE PULMONARY DISEASE
     Route: 055
     Dates: start: 20100801
  3. ALBUTEROL SULFATE AUTOHALER [Concomitant]

REACTIONS (2)
  - VISION BLURRED [None]
  - ACCIDENTAL EXPOSURE [None]
